FAERS Safety Report 6816421-3 (Version None)
Quarter: 2010Q3

REPORT INFORMATION
  Report Type: 
  Country: None (occurrence: None)
  Receive Date: 20100705
  Receipt Date: 20100630
  Transmission Date: 20110219
  Serious: No
  Sender: FDA-Public Use
  Company Number: JP-BRISTOL-MYERS SQUIBB COMPANY-14920797

PATIENT
  Age: 37 Decade
  Sex: Female

DRUGS (17)
  1. ABILIFY [Suspect]
     Indication: AFFECT LABILITY
     Dosage: ALSO TAKEN 6MG QD ONG
     Route: 048
     Dates: start: 20060101
  2. ABILIFY [Suspect]
     Indication: DEPRESSIVE SYMPTOM
     Dosage: ALSO TAKEN 6MG QD ONG
     Route: 048
     Dates: start: 20060101
  3. ABILIFY [Suspect]
     Indication: PERSONALITY DISORDER
     Dosage: ALSO TAKEN 6MG QD ONG
     Route: 048
     Dates: start: 20060101
  4. ABILIFY [Suspect]
     Indication: SCHIZOPHRENIA
     Dosage: ALSO TAKEN 6MG QD ONG
     Route: 048
     Dates: start: 20060101
  5. DEPROMEL [Suspect]
     Indication: AFFECT LABILITY
     Dosage: FORM: TABS
     Route: 048
     Dates: start: 20060101
  6. DEPROMEL [Suspect]
     Indication: DEPRESSIVE SYMPTOM
     Dosage: FORM: TABS
     Route: 048
     Dates: start: 20060101
  7. DEPROMEL [Suspect]
     Indication: PERSONALITY DISORDER
     Dosage: FORM: TABS
     Route: 048
     Dates: start: 20060101
  8. MIRADOL [Suspect]
     Indication: AFFECT LABILITY
     Dosage: FORM: TABLET; PREVIOUS TID 50MG
     Route: 048
     Dates: start: 20060101
  9. MIRADOL [Suspect]
     Indication: DEPRESSIVE SYMPTOM
     Dosage: FORM: TABLET; PREVIOUS TID 50MG
     Route: 048
     Dates: start: 20060101
  10. MIRADOL [Suspect]
     Indication: PERSONALITY DISORDER
     Dosage: FORM: TABLET; PREVIOUS TID 50MG
     Route: 048
     Dates: start: 20060101
  11. LULLAN [Suspect]
     Indication: AFFECT LABILITY
     Dosage: FORM : TABLET
     Route: 048
     Dates: start: 20060101
  12. LULLAN [Suspect]
     Indication: DEPRESSIVE SYMPTOM
     Dosage: FORM : TABLET
     Route: 048
     Dates: start: 20060101
  13. LULLAN [Suspect]
     Indication: PERSONALITY DISORDER
     Dosage: FORM : TABLET
     Route: 048
     Dates: start: 20060101
  14. SEROQUEL [Suspect]
     Indication: AFFECT LABILITY
     Dosage: FORM : TABLET
     Route: 048
     Dates: start: 20060101
  15. SEROQUEL [Suspect]
     Indication: DEPRESSIVE SYMPTOM
     Dosage: FORM : TABLET
     Route: 048
     Dates: start: 20060101
  16. SEROQUEL [Suspect]
     Indication: PERSONALITY DISORDER
     Dosage: FORM : TABLET
     Route: 048
     Dates: start: 20060101
  17. BENZALIN [Suspect]
     Indication: INSOMNIA
     Dosage: FORM: TABLET
     Route: 048
     Dates: start: 20060101

REACTIONS (1)
  - PREGNANCY [None]
